FAERS Safety Report 15976718 (Version 2)
Quarter: 2019Q1

REPORT INFORMATION
  Report Type: Report from Study
  Country: DE (occurrence: DE)
  Receive Date: 20190218
  Receipt Date: 20190222
  Transmission Date: 20190418
  Serious: Yes (Death, Life-Threatening, Hospitalization)
  Sender: FDA-Public Use
  Company Number: DE-JNJFOC-20180921171

PATIENT
  Age: 67 Year
  Sex: Male
  Weight: 81 kg

DRUGS (10)
  1. AZITHROMYCIN ANHYDROUS. [Concomitant]
     Active Substance: AZITHROMYCIN ANHYDROUS
     Dates: start: 20180920
  2. NOVAMINSULFON [Concomitant]
     Active Substance: METAMIZOLE
     Dates: start: 20180913
  3. METOCLOPRAMIDA [Concomitant]
     Active Substance: METOCLOPRAMIDE HYDROCHLORIDE
     Indication: PROPHYLAXIS
     Dates: start: 20180709, end: 20180903
  4. PIPERACILLIN/TAZOBACTAM [Concomitant]
     Active Substance: PIPERACILLIN SODIUM\TAZOBACTAM SODIUM
     Dates: start: 20180920
  5. IBRUTINIB [Suspect]
     Active Substance: IBRUTINIB
     Indication: CHRONIC LYMPHOCYTIC LEUKAEMIA
     Route: 048
     Dates: start: 20180822, end: 20180917
  6. IBRUTINIB [Suspect]
     Active Substance: IBRUTINIB
     Indication: CHRONIC LYMPHOCYTIC LEUKAEMIA
     Route: 048
     Dates: start: 20180918, end: 20180928
  7. ALLOPURINOL. [Concomitant]
     Active Substance: ALLOPURINOL
     Indication: PROPHYLAXIS
     Route: 065
  8. PREDNISOLONE. [Concomitant]
     Active Substance: PREDNISOLONE
     Indication: PROPHYLAXIS
     Dates: start: 20180830
  9. AZACITIDINE. [Concomitant]
     Active Substance: AZACITIDINE
     Indication: PROPHYLAXIS
     Dates: start: 20180709, end: 20180903
  10. PANTOPRAZOL [Concomitant]
     Active Substance: PANTOPRAZOLE SODIUM
     Indication: PROPHYLAXIS
     Route: 065

REACTIONS (8)
  - Thrombocytosis [Not Recovered/Not Resolved]
  - Thrombocytopenia [Not Recovered/Not Resolved]
  - Myelodysplastic syndrome [Fatal]
  - Pneumonia [Recovered/Resolved]
  - Chronic lymphocytic leukaemia [Fatal]
  - Prescribed underdose [Unknown]
  - Infection [Fatal]
  - Off label use [Unknown]

NARRATIVE: CASE EVENT DATE: 20180917
